FAERS Safety Report 6228459-8 (Version None)
Quarter: 2009Q2

REPORT INFORMATION
  Report Type: 
  Country: None (occurrence: None)
  Receive Date: 20090612
  Receipt Date: 20090603
  Transmission Date: 20091009
  Serious: Yes (Other)
  Sender: FDA-Public Use
  Company Number: US-ELI_LILLY_AND_COMPANY-US200906001324

PATIENT
  Age: 60 Year
  Sex: Female

DRUGS (7)
  1. EVISTA [Suspect]
     Dosage: UNK, UNKNOWN
     Route: 065
  2. EVISTA [Suspect]
     Dosage: UNK, UNKNOWN
     Route: 065
     Dates: start: 20080701
  3. SYNTHROID [Concomitant]
     Dosage: UNK, UNKNOWN
     Route: 065
  4. VITAMIN B COMPLEX CAP [Concomitant]
     Dosage: UNK, UNKNOWN
     Route: 065
  5. TYLENOL (CAPLET) [Concomitant]
     Dosage: UNK, AS NEEDED
     Route: 065
  6. LOVAZA [Concomitant]
     Dosage: UNK, UNKNOWN
     Route: 065
  7. ASCORBIC ACID [Concomitant]
     Dosage: UNK, UNKNOWN
     Route: 065

REACTIONS (5)
  - BLOOD CHOLESTEROL INCREASED [None]
  - BLOOD TRIGLYCERIDES INCREASED [None]
  - LETHARGY [None]
  - THYROID FUNCTION TEST ABNORMAL [None]
  - VOMITING [None]
